FAERS Safety Report 17883410 (Version 1)
Quarter: 2020Q2

REPORT INFORMATION
  Report Type: Spontaneous
  Country: GB (occurrence: GB)
  Receive Date: 20200611
  Receipt Date: 20200611
  Transmission Date: 20200714
  Serious: Yes (Other)
  Sender: FDA-Public Use
  Company Number: GB-TEVA-2020-GB-1246763

PATIENT
  Age: 65 Year
  Sex: Male

DRUGS (2)
  1. STATIN NOS [Interacting]
     Active Substance: UNSPECIFIED INGREDIENT
     Route: 065
  2. AZITHROMYCIN ANHYDROUS. [Suspect]
     Active Substance: AZITHROMYCIN ANHYDROUS
     Route: 065
     Dates: start: 20200206

REACTIONS (2)
  - Myalgia [Unknown]
  - Drug interaction [Unknown]
